FAERS Safety Report 16973004 (Version 3)
Quarter: 2020Q1

REPORT INFORMATION
  Report Type: Report from Study
  Country: US (occurrence: US)
  Receive Date: 20191030
  Receipt Date: 20200327
  Transmission Date: 20200409
  Serious: Yes (Death, Life-Threatening, Hospitalization, Other)
  Sender: FDA-Public Use
  Company Number: US-ROCHE-2290308

PATIENT
  Age: 4 Year
  Sex: Male
  Weight: 26.1 kg

DRUGS (33)
  1. ALBUTEROL [SALBUTAMOL] [Concomitant]
     Active Substance: ALBUTEROL
  2. SCOPOLAMINE [HYOSCINE] [Concomitant]
     Active Substance: SCOPOLAMINE
  3. DESMOPRESSIN [Concomitant]
     Active Substance: DESMOPRESSIN
  4. DIAZEPAM. [Concomitant]
     Active Substance: DIAZEPAM
     Route: 065
  5. FENTANYL. [Concomitant]
     Active Substance: FENTANYL
  6. SENNOSIDES. [Concomitant]
     Active Substance: SENNOSIDES
     Route: 065
  7. SIMETHICONE (DIMETHICONE) [Concomitant]
     Active Substance: DIMETHICONE
  8. ACETAMINOPHEN. [Concomitant]
     Active Substance: ACETAMINOPHEN
  9. ENTRECTINIB [Suspect]
     Active Substance: ENTRECTINIB
     Indication: ANAPLASTIC ASTROCYTOMA
  10. LEVETIRACETAM. [Concomitant]
     Active Substance: LEVETIRACETAM
  11. CHOLECALCIFEROL [Concomitant]
     Active Substance: CHOLECALCIFEROL
     Route: 065
     Dates: start: 200403
  12. PYRIDOXINE [Concomitant]
     Active Substance: PYRIDOXINE
  13. GABAPENTIN. [Concomitant]
     Active Substance: GABAPENTIN
  14. ATOVAQUONE. [Concomitant]
     Active Substance: ATOVAQUONE
  15. ENTRECTINIB [Suspect]
     Active Substance: ENTRECTINIB
     Indication: NEOPLASM
     Dosage: FEEDING TUBE
     Route: 048
     Dates: start: 20190312
  16. FAMOTIDINE. [Concomitant]
     Active Substance: FAMOTIDINE
  17. HYDROCORTISON [HYDROCORTISONE] [Concomitant]
  18. OMEGA 3 [DOCOSAHEXAENOIC ACID;EICOSAPENTAENOIC ACID] [Concomitant]
     Active Substance: DOCONEXENT\ICOSAPENT
  19. METHADONE [Concomitant]
     Active Substance: METHADONE HYDROCHLORIDE
     Route: 065
     Dates: start: 20190813
  20. MORPHINE [Concomitant]
     Active Substance: MORPHINE
     Route: 065
  21. POTASSIUM CHLORIDE. [Concomitant]
     Active Substance: POTASSIUM CHLORIDE
  22. NALOXONE [Concomitant]
     Active Substance: NALOXONE
  23. DEXAMETHASONE. [Concomitant]
     Active Substance: DEXAMETHASONE
  24. SODIUM CHLORIDE. [Concomitant]
     Active Substance: SODIUM CHLORIDE
  25. NYSTATINE [Concomitant]
  26. GABAPENTIN. [Concomitant]
     Active Substance: GABAPENTIN
  27. LEVOTHYROXINE. [Concomitant]
     Active Substance: LEVOTHYROXINE
  28. ONDANSETRON [Concomitant]
     Active Substance: ONDANSETRON
  29. PERAMPANEL [Concomitant]
     Active Substance: PERAMPANEL
     Route: 065
     Dates: start: 20190420
  30. BACLOFEN. [Concomitant]
     Active Substance: BACLOFEN
  31. LORAZEPAM. [Concomitant]
     Active Substance: LORAZEPAM
     Route: 065
  32. POLYETHYLENE GLYCOL [Concomitant]
     Active Substance: POLYETHYLENE GLYCOLS
  33. MAGNESIUM CHLORIDE. [Concomitant]
     Active Substance: MAGNESIUM CHLORIDE

REACTIONS (12)
  - Hyponatraemia [Recovered/Resolved]
  - Wound infection [Unknown]
  - Respiratory syncytial virus infection [Unknown]
  - Viral upper respiratory tract infection [Unknown]
  - Anaemia [Recovered/Resolved]
  - Adenovirus infection [Unknown]
  - Hypoxia [Unknown]
  - Pneumonia aspiration [Recovered/Resolved]
  - Seizure [Recovered/Resolved]
  - Hypernatraemia [Recovered/Resolved]
  - Lipase increased [Recovered/Resolved]
  - Alanine aminotransferase increased [Unknown]

NARRATIVE: CASE EVENT DATE: 20190319
